FAERS Safety Report 8975432 (Version 1)
Quarter: 2012Q4

REPORT INFORMATION
  Report Type: 
  Country: US (occurrence: US)
  Receive Date: 20121219
  Receipt Date: 20121219
  Transmission Date: 20130627
  Serious: No
  Sender: FDA-Public Use
  Company Number: US-AMGEN-USASP2012065781

PATIENT
  Age: 77 Year
  Sex: Female
  Weight: 69 kg

DRUGS (1)
  1. PROLIA [Suspect]
     Indication: OSTEOPOROSIS POSTMENOPAUSAL
     Dosage: 60 mg, q6mo
     Route: 058
     Dates: start: 201204

REACTIONS (7)
  - Dizziness [Recovered/Resolved]
  - Muscular weakness [Recovered/Resolved]
  - Gait disturbance [Recovered/Resolved]
  - Dysstasia [Recovered/Resolved]
  - Groin pain [Unknown]
  - Arthralgia [Unknown]
  - Pain in extremity [Recovered/Resolved]
